FAERS Safety Report 15091513 (Version 1)
Quarter: 2018Q3

REPORT INFORMATION
  Report Type: Spontaneous
  Country: JP (occurrence: JP)
  Receive Date: 20180629
  Receipt Date: 20180629
  Transmission Date: 20181010
  Serious: Yes (Hospitalization, Other)
  Sender: FDA-Public Use
  Company Number: JP-ASTRAZENECA-2018SE66006

PATIENT
  Age: 22591 Day
  Sex: Male
  Weight: 56 kg

DRUGS (3)
  1. IRESSA [Suspect]
     Active Substance: GEFITINIB
     Indication: LUNG ADENOCARCINOMA
     Route: 048
     Dates: start: 20180427, end: 20180507
  2. HEXATRON [Suspect]
     Active Substance: TRANEXAMIC ACID
     Indication: HAEMOPTYSIS
     Route: 048
     Dates: start: 20180406
  3. ADONA (CARBAZOCHROME SODIUM SULFONATE) [Suspect]
     Active Substance: CARBAZOCHROME SODIUM SULFONATE
     Indication: HAEMOPTYSIS
     Route: 048
     Dates: start: 20180406

REACTIONS (4)
  - Pneumonia [Recovering/Resolving]
  - Pyrexia [Recovering/Resolving]
  - Eosinophil count increased [Not Recovered/Not Resolved]
  - Bronchitis [Unknown]

NARRATIVE: CASE EVENT DATE: 20180501
